FAERS Safety Report 6922250-2 (Version None)
Quarter: 2010Q3

REPORT INFORMATION
  Report Type: 
  Country: None (occurrence: None)
  Receive Date: 20100813
  Receipt Date: 20100810
  Transmission Date: 20110219
  Serious: Yes (Hospitalization, Other)
  Sender: FDA-Public Use
  Company Number: US-BIOGENIDEC-2010BI015140

PATIENT
  Age: 34 Year
  Sex: Female

DRUGS (1)
  1. TYSABRI [Suspect]
     Indication: MULTIPLE SCLEROSIS
     Route: 042
     Dates: start: 20070928

REACTIONS (17)
  - ANIMAL BITE [None]
  - CHEST PAIN [None]
  - CHOLECYSTECTOMY [None]
  - CONTUSION [None]
  - DYSPNOEA [None]
  - FATIGUE [None]
  - ILL-DEFINED DISORDER [None]
  - INFECTED BITES [None]
  - INSOMNIA [None]
  - LIMB INJURY [None]
  - OROPHARYNGEAL CANDIDIASIS [None]
  - OSTEOMYELITIS [None]
  - PAIN [None]
  - RASH [None]
  - STAPHYLOCOCCAL INFECTION [None]
  - THROMBOSIS [None]
  - VITAMIN D DECREASED [None]
